FAERS Safety Report 17560940 (Version 3)
Quarter: 2023Q4

REPORT INFORMATION
  Report Type: Spontaneous
  Country: US (occurrence: US)
  Receive Date: 20200319
  Receipt Date: 20231025
  Transmission Date: 20240110
  Serious: Yes (Hospitalization, Other)
  Sender: FDA-Public Use
  Company Number: US-MLMSERVICE-20200303-2193273-1

PATIENT
  Age: 32 Year
  Sex: Female

DRUGS (11)
  1. RIFAXIMIN [Suspect]
     Active Substance: RIFAXIMIN
     Indication: Hyperammonaemic encephalopathy
     Route: 065
  2. DEXAMETHASONE [Suspect]
     Active Substance: DEXAMETHASONE
     Indication: Hypertransaminasaemia
     Route: 065
  3. NIVOLUMAB [Suspect]
     Active Substance: NIVOLUMAB
     Indication: Hepatocellular carcinoma
     Route: 065
  4. NIVOLUMAB [Suspect]
     Active Substance: NIVOLUMAB
     Indication: Hepatocellular carcinoma
  5. LACTULOSE [Suspect]
     Active Substance: LACTULOSE
     Indication: Hyperammonaemic encephalopathy
     Route: 065
  6. SODIUM PHENYLACETATE [Suspect]
     Active Substance: SODIUM PHENYLACETATE
     Indication: Hyperammonaemic encephalopathy
     Route: 065
  7. ARGININE [Suspect]
     Active Substance: ARGININE
     Indication: Hyperammonaemic encephalopathy
     Route: 065
  8. DEXTROSE\WATER [Suspect]
     Active Substance: DEXTROSE\WATER
     Indication: Hyperammonaemic encephalopathy
     Route: 065
  9. PREDNISONE [Suspect]
     Active Substance: PREDNISONE
     Indication: Rash
     Route: 065
  10. GLYCEROL PHENYLBUTYRATE [Suspect]
     Active Substance: GLYCEROL PHENYLBUTYRATE
     Indication: Hyperammonaemic encephalopathy
     Route: 065
  11. CITRULLINE [Suspect]
     Active Substance: CITRULLINE
     Indication: Hyperammonaemic encephalopathy
     Route: 065

REACTIONS (4)
  - Hyperammonaemic encephalopathy [Not Recovered/Not Resolved]
  - Condition aggravated [Not Recovered/Not Resolved]
  - Therapy partial responder [Unknown]
  - Hepatic steatosis [Unknown]
